FAERS Safety Report 12076147 (Version 1)
Quarter: 2016Q1

REPORT INFORMATION
  Report Type: Spontaneous
  Country: US (occurrence: US)
  Receive Date: 20160215
  Receipt Date: 20160215
  Transmission Date: 20160526
  Serious: Yes (Hospitalization)
  Sender: FDA-Public Use
  Company Number: US-BEH-2016058577

PATIENT
  Sex: Male
  Weight: 28 kg

DRUGS (11)
  1. AMLODIPINE [Concomitant]
     Active Substance: AMLODIPINE BESYLATE
  2. DIFLUCAN [Concomitant]
     Active Substance: FLUCONAZOLE
  3. ACTIGALL [Concomitant]
     Active Substance: URSODIOL
  4. HIZENTRA [Suspect]
     Active Substance: HUMAN IMMUNOGLOBULIN G
     Indication: COMBINED IMMUNODEFICIENCY
     Dosage: 1 GM 5 ML VIAL
     Route: 058
  5. MULTIVITAMINS [Concomitant]
     Active Substance: VITAMINS
  6. FOLIC ACID. [Concomitant]
     Active Substance: FOLIC ACID
  7. EPIPEN [Concomitant]
     Active Substance: EPINEPHRINE
  8. BUDESONIDE. [Concomitant]
     Active Substance: BUDESONIDE
  9. PEPCID [Concomitant]
     Active Substance: FAMOTIDINE
  10. HIZENTRA [Suspect]
     Active Substance: HUMAN IMMUNOGLOBULIN G
     Dosage: 4 GM 20 ML VIALS
     Route: 058
  11. PREDNISONE. [Concomitant]
     Active Substance: PREDNISONE

REACTIONS (1)
  - Pancreatitis [Unknown]
